FAERS Safety Report 7757448-7 (Version None)
Quarter: 2011Q3

REPORT INFORMATION
  Report Type: 
  Country: None (occurrence: None)
  Receive Date: 20110916
  Receipt Date: 20110912
  Transmission Date: 20111222
  Serious: Yes (Other)
  Sender: FDA-Public Use
  Company Number: US-ABBOTT-11P-163-0854368-00

PATIENT
  Age: 40 Year
  Sex: Female

DRUGS (8)
  1. IBUPROFEN [Concomitant]
     Indication: MUSCLE SPASMS
     Route: 048
  2. METFORMIN HCL [Concomitant]
     Indication: DIABETES MELLITUS
     Route: 048
  3. HUMIRA [Suspect]
     Indication: PSORIATIC ARTHROPATHY
     Dates: start: 20070601
  4. LISINOPRIL [Concomitant]
     Indication: BLOOD PRESSURE
     Route: 048
  5. HUMIRA [Suspect]
     Dosage: INCREASING DAYS BETWEEN THEN TAPPERED
     Dates: end: 20110515
  6. HUMIRA [Suspect]
     Indication: PSORIASIS
  7. GLIMEPIRIDE [Concomitant]
     Indication: DIABETES MELLITUS
  8. BUPROPION HCL [Concomitant]
     Indication: ANXIETY
     Route: 048

REACTIONS (8)
  - SYNOVIAL CYST [None]
  - ARTHROPATHY [None]
  - LYMPHADENOPATHY [None]
  - CONDITION AGGRAVATED [None]
  - INCORRECT DRUG ADMINISTRATION DURATION [None]
  - PSORIASIS [None]
  - BLOOD CHOLESTEROL INCREASED [None]
  - TREATMENT NONCOMPLIANCE [None]
